FAERS Safety Report 15148995 (Version 2)
Quarter: 2024Q3

REPORT INFORMATION
  Report Type: Spontaneous
  Country: AT (occurrence: AT)
  Receive Date: 20180716
  Receipt Date: 20240701
  Transmission Date: 20241017
  Serious: Yes (Other)
  Sender: GLAXOSMITHKLINE
  Company Number: AT-OTSUKA-2018_018284

PATIENT

DRUGS (42)
  1. WELLBUTRIN [Suspect]
     Active Substance: BUPROPION HYDROCHLORIDE
     Indication: Product used for unknown indication
     Dosage: 150 MG, UNK
     Route: 065
     Dates: start: 20161207, end: 20161215
  2. WELLBUTRIN [Suspect]
     Active Substance: BUPROPION HYDROCHLORIDE
     Dosage: 300 MG, UNK
     Route: 065
     Dates: start: 20170111, end: 20170117
  3. WELLBUTRIN [Suspect]
     Active Substance: BUPROPION HYDROCHLORIDE
     Dosage: 150 MG, UNK
     Route: 065
     Dates: start: 20161227, end: 20170110
  4. WELLBUTRIN [Suspect]
     Active Substance: BUPROPION HYDROCHLORIDE
     Dosage: 150 MG, UNK
     Route: 065
  5. WELLBUTRIN [Suspect]
     Active Substance: BUPROPION HYDROCHLORIDE
     Dosage: 150 MG
     Route: 065
     Dates: start: 20170118
  6. LAMICTAL [Suspect]
     Active Substance: LAMOTRIGINE
     Indication: Product used for unknown indication
     Dosage: 25 MG
     Route: 065
     Dates: start: 201611, end: 20161212
  7. LAMICTAL [Suspect]
     Active Substance: LAMOTRIGINE
     Dosage: 50 MG
     Route: 065
     Dates: start: 20161213, end: 20161219
  8. LAMICTAL [Suspect]
     Active Substance: LAMOTRIGINE
     Dosage: 125 MG
     Route: 065
     Dates: start: 20170103, end: 20170108
  9. LAMICTAL [Suspect]
     Active Substance: LAMOTRIGINE
     Dosage: 175 MG
     Route: 065
     Dates: start: 20170117, end: 20170123
  10. LAMICTAL [Suspect]
     Active Substance: LAMOTRIGINE
     Dosage: 200 MG
     Route: 065
     Dates: start: 20170124
  11. LAMICTAL [Suspect]
     Active Substance: LAMOTRIGINE
     Dosage: 225 MG
     Route: 065
     Dates: start: 20170109, end: 20170109
  12. LAMICTAL [Suspect]
     Active Substance: LAMOTRIGINE
     Dosage: 100 MG
     Route: 065
     Dates: start: 20161227, end: 20170102
  13. LAMICTAL [Suspect]
     Active Substance: LAMOTRIGINE
     Dosage: 175 MG, UNK
     Route: 065
     Dates: start: 20161220, end: 20161226
  14. LAMICTAL [Suspect]
     Active Substance: LAMOTRIGINE
     Dosage: 225 MG, UNK
     Route: 065
     Dates: start: 20170109, end: 20170109
  15. OXAZEPAM [Suspect]
     Active Substance: OXAZEPAM
     Indication: Product used for unknown indication
     Dosage: 15 MG, UNK
     Route: 065
     Dates: start: 20161208, end: 20161208
  16. OXAZEPAM [Suspect]
     Active Substance: OXAZEPAM
     Dosage: 15 MG, UNK
     Route: 065
     Dates: start: 20161224, end: 20161224
  17. OXAZEPAM [Suspect]
     Active Substance: OXAZEPAM
     Dosage: 30 MG, UNK
     Route: 065
     Dates: start: 20161221, end: 20161223
  18. INDERAL [Suspect]
     Active Substance: PROPRANOLOL HYDROCHLORIDE
     Indication: Product used for unknown indication
     Dosage: 10-20 MG
     Route: 065
     Dates: start: 20161208, end: 20161213
  19. INDERAL [Suspect]
     Active Substance: PROPRANOLOL HYDROCHLORIDE
     Dosage: 10 MG, UNK
     Route: 065
     Dates: start: 20161220, end: 20161226
  20. INDERAL [Suspect]
     Active Substance: PROPRANOLOL HYDROCHLORIDE
     Dosage: 10 MG, UNK
     Route: 065
     Dates: start: 20161215, end: 20161217
  21. INDERAL [Suspect]
     Active Substance: PROPRANOLOL HYDROCHLORIDE
     Dosage: 10 MG, UNK
     Route: 065
     Dates: start: 20161231, end: 20161231
  22. INDERAL [Suspect]
     Active Substance: PROPRANOLOL HYDROCHLORIDE
     Dosage: 10 MG, UNK
     Route: 065
     Dates: start: 20170111, end: 20170113
  23. ZOLPIDEM TARTRATE [Suspect]
     Active Substance: ZOLPIDEM TARTRATE
     Indication: Product used for unknown indication
     Dosage: 5 MG, UNK
     Route: 065
     Dates: start: 20161212, end: 20161213
  24. ZOLPIDEM TARTRATE [Suspect]
     Active Substance: ZOLPIDEM TARTRATE
     Dosage: 10 MG, UNK
     Route: 065
     Dates: start: 20161214, end: 20161214
  25. ZOLPIDEM TARTRATE [Suspect]
     Active Substance: ZOLPIDEM TARTRATE
     Dosage: 5 MG, UNK
     Route: 065
     Dates: start: 20170113, end: 20170123
  26. ZOLPIDEM TARTRATE [Suspect]
     Active Substance: ZOLPIDEM TARTRATE
     Dosage: 5 MG, UNK
     Route: 065
     Dates: start: 20170113, end: 20170121
  27. ABILIFY [Suspect]
     Active Substance: ARIPIPRAZOLE
     Indication: Product used for unknown indication
     Dosage: 5 MG, QD
     Route: 065
     Dates: start: 20161214, end: 20161221
  28. PROTHIPENDYL HYDROCHLORIDE [Suspect]
     Active Substance: PROTHIPENDYL HYDROCHLORIDE
     Indication: Product used for unknown indication
     Dosage: 80 MG, UNK
     Route: 065
     Dates: start: 20161215, end: 20161215
  29. PROTHIPENDYL HYDROCHLORIDE [Suspect]
     Active Substance: PROTHIPENDYL HYDROCHLORIDE
     Dosage: 40 MG, UNK
     Route: 065
     Dates: start: 20161216, end: 20161219
  30. PROTHIPENDYL HYDROCHLORIDE [Suspect]
     Active Substance: PROTHIPENDYL HYDROCHLORIDE
     Dosage: 80 MG, UNK
     Route: 065
     Dates: start: 20161220, end: 20161226
  31. CHOLECALCIFEROL\CHOLESTEROL [Suspect]
     Active Substance: CHOLECALCIFEROL\CHOLESTEROL
     Indication: Product used for unknown indication
     Dosage: 30 GTT
     Route: 065
     Dates: start: 2016
  32. VENLAFAXINE HYDROCHLORIDE [Suspect]
     Active Substance: VENLAFAXINE HYDROCHLORIDE
     Indication: Product used for unknown indication
     Dosage: 75 MG, UNK
     Route: 065
     Dates: start: 20161216, end: 20161218
  33. Kalioral [Concomitant]
     Indication: Product used for unknown indication
     Dosage: 1 MG, UNK
     Route: 065
     Dates: start: 20161206, end: 20161209
  34. DOXAZOSIN [Concomitant]
     Active Substance: DOXAZOSIN MESYLATE
     Indication: Product used for unknown indication
     Dosage: 1 MG
     Route: 065
     Dates: start: 20170103, end: 20170106
  35. DOXAZOSIN [Concomitant]
     Active Substance: DOXAZOSIN MESYLATE
     Dosage: 2 MG
     Route: 065
     Dates: start: 20170107, end: 20170108
  36. DOXAZOSIN [Concomitant]
     Active Substance: DOXAZOSIN MESYLATE
     Dosage: 1 MG
     Route: 065
     Dates: start: 20161223, end: 20161224
  37. Temesta [Concomitant]
     Indication: Product used for unknown indication
     Dosage: 0.5 MG
     Route: 065
     Dates: start: 20161227, end: 20161227
  38. Temesta [Concomitant]
     Dosage: 1.5 MG
     Route: 065
     Dates: start: 20161225, end: 20161225
  39. Temesta [Concomitant]
     Dosage: 1 MG
     Route: 065
     Dates: start: 20161223, end: 20161223
  40. Temesta [Concomitant]
     Dosage: 1 MG
     Route: 065
     Dates: start: 20161226, end: 20161226
  41. CITALOPRAM [Concomitant]
     Active Substance: CITALOPRAM\CITALOPRAM HYDROBROMIDE
     Indication: Product used for unknown indication
     Dosage: 10 MG
     Route: 065
     Dates: start: 20161223, end: 20161224
  42. CITALOPRAM [Concomitant]
     Active Substance: CITALOPRAM\CITALOPRAM HYDROBROMIDE
     Dosage: 20 MG
     Route: 065
     Dates: start: 20161225, end: 20161225

REACTIONS (5)
  - Nightmare [Unknown]
  - Vision blurred [Unknown]
  - Visual impairment [Recovered/Resolved]
  - Urinary retention [Recovered/Resolved]
  - Galactorrhoea [Recovering/Resolving]

NARRATIVE: CASE EVENT DATE: 20161215
